FAERS Safety Report 10082365 (Version 1)
Quarter: 2014Q2

REPORT INFORMATION
  Report Type: Spontaneous
  Country: US (occurrence: None)
  Receive Date: 20140415
  Receipt Date: 20140415
  Transmission Date: 20141212
  Serious: No
  Sender: FDA-Public Use
  Company Number: None

PATIENT
  Age: 31 Year
  Sex: Male

DRUGS (2)
  1. PAROXETINE 10 MG AUROBINDO AUROLIFE [Suspect]
     Indication: ANXIETY
     Route: 048
  2. PAROXETINE 10 MG AUROBINDO AUROLIFE [Suspect]
     Indication: OBSESSIVE-COMPULSIVE DISORDER
     Route: 048

REACTIONS (6)
  - Energy increased [None]
  - Poor quality sleep [None]
  - Eating disorder [None]
  - Tremor [None]
  - Product measured potency issue [None]
  - Drug ineffective [None]
